FAERS Safety Report 5376132-0 (Version None)
Quarter: 2007Q3

REPORT INFORMATION
  Report Type: 
  Country: None (occurrence: None)
  Receive Date: 20070702
  Receipt Date: 20070629
  Transmission Date: 20080115
  Serious: Yes (Hospitalization)
  Sender: FDA-Public Use
  Company Number: B0477418A

PATIENT
  Age: 21 Year
  Sex: Male

DRUGS (2)
  1. NEODUPLAMOX [Suspect]
     Indication: ACUTE TONSILLITIS
     Dosage: 1G PER DAY
     Route: 048
     Dates: start: 20070606, end: 20070606
  2. NIMESULIDE [Concomitant]
     Indication: ACUTE TONSILLITIS
     Dosage: 100MG PER DAY
     Route: 048
     Dates: start: 20070606, end: 20070606

REACTIONS (2)
  - ABDOMINAL PAIN UPPER [None]
  - VOMITING [None]
